FAERS Safety Report 4320201-0 (Version None)
Quarter: 2004Q1

REPORT INFORMATION
  Report Type: 
  Country: None (occurrence: None)
  Receive Date: 20040317
  Receipt Date: 20031119
  Transmission Date: 20041129
  Serious: Yes (Hospitalization)
  Sender: FDA-Public Use
  Company Number: 2003-DE-04657YA

PATIENT
  Age: 80 Year
  Sex: Male

DRUGS (3)
  1. HARNAL (NR) TAMSULOSIN HYDROCHLORIDE) [Suspect]
     Indication: BENIGN PROSTATIC HYPERPLASIA
     Dosage: 0.2 MG (NR), PO
     Route: 048
     Dates: start: 20030827
  2. CASODEX [Suspect]
     Indication: PROSTATE CANCER
     Dosage: 80 MG AM, PO
     Route: 048
     Dates: start: 20030901
  3. BETHANECHOL CHLORIDE (BETHANECHOL CHLORIDE) (NR) [Concomitant]

REACTIONS (5)
  - ALCOHOLIC LIVER DISEASE [None]
  - CHOLELITHIASIS [None]
  - HEPATIC FUNCTION ABNORMAL [None]
  - LYMPHOCYTE TRANSFORMATION TEST POSITIVE [None]
  - MALAISE [None]
